FAERS Safety Report 17491410 (Version 1)
Quarter: 2020Q1

REPORT INFORMATION
  Report Type: Report from Study
  Country: None (occurrence: US)
  Receive Date: 20200304
  Receipt Date: 20200304
  Transmission Date: 20200409
  Serious: Yes (Other)
  Sender: FDA-Public Use
  Company Number: US-ABBVIE-19K-163-2676208-00

PATIENT
  Sex: Male

DRUGS (2)
  1. HUMIRA [Suspect]
     Active Substance: ADALIMUMAB
     Route: 058
     Dates: start: 202001
  2. HUMIRA [Suspect]
     Active Substance: ADALIMUMAB
     Indication: ANKYLOSING SPONDYLITIS
     Route: 058
     Dates: start: 20190215, end: 2019

REACTIONS (18)
  - General physical condition abnormal [Recovering/Resolving]
  - Loss of personal independence in daily activities [Unknown]
  - General physical condition abnormal [Unknown]
  - Joint range of motion decreased [Unknown]
  - Seasonal allergy [Unknown]
  - Pain [Recovering/Resolving]
  - Hypersensitivity [Unknown]
  - Inflammation [Recovering/Resolving]
  - Musculoskeletal stiffness [Recovering/Resolving]
  - Osteoarthritis [Unknown]
  - Fatigue [Not Recovered/Not Resolved]
  - Dysstasia [Unknown]
  - Swelling [Recovering/Resolving]
  - Back pain [Not Recovered/Not Resolved]
  - Arthralgia [Recovering/Resolving]
  - Psoriasis [Not Recovered/Not Resolved]
  - Mobility decreased [Unknown]
  - Neck pain [Not Recovered/Not Resolved]

NARRATIVE: CASE EVENT DATE: 2019
